FAERS Safety Report 4360756-3 (Version None)
Quarter: 2004Q2

REPORT INFORMATION
  Report Type: 
  Country: None (occurrence: None)
  Receive Date: 20040517
  Receipt Date: 20040427
  Transmission Date: 20050107
  Serious: Yes (Hospitalization)
  Sender: FDA-Public Use
  Company Number: A03200401321

PATIENT
  Age: 50 Year
  Sex: Male

DRUGS (18)
  1. DEMEROL [Suspect]
     Indication: ABDOMINAL PAIN UPPER
     Dates: start: 20010101, end: 20020611
  2. DEMEROL [Suspect]
     Indication: INSOMNIA
     Dates: start: 20010101, end: 20020611
  3. DEMEROL [Suspect]
     Indication: PAIN
     Dates: start: 20010101, end: 20020611
  4. INTERFERON GAMMA-1B - SOLUTION - [Suspect]
     Indication: HEPATIC CIRRHOSIS
     Dosage: 100 UG TIW, SUBCUTANEOUS
     Route: 058
     Dates: start: 20020305, end: 20020611
  5. INTERFERON GAMMA-1B - SOLUTION - [Suspect]
     Indication: HEPATIC FIBROSIS
     Dosage: 100 UG TIW, SUBCUTANEOUS
     Route: 058
     Dates: start: 20020305, end: 20020611
  6. INTERFERON GAMMA-1B - SOLUTION - [Suspect]
     Indication: HEPATITIS C
     Dosage: 100 UG TIW, SUBCUTANEOUS
     Route: 058
     Dates: start: 20020305, end: 20020611
  7. XANAX [Suspect]
     Indication: ANXIETY
     Dates: start: 19990101, end: 20020611
  8. PROZAC [Suspect]
     Indication: DEPRESSION
     Dates: end: 20000101
  9. LEVSIN - HYOSCYAMINE SULFATE [Suspect]
     Indication: ABDOMINAL PAIN
     Dates: start: 20020101, end: 20020611
  10. OMEPRAZOLE [Concomitant]
  11. SPIRONOLACTONE [Concomitant]
  12. FUROSEMIDE [Concomitant]
  13. PROPRANOLOL [Concomitant]
  14. IBUPROFEN [Concomitant]
  15. CODEINE/GUAIFENESIN [Concomitant]
  16. AZITHROMYCIN [Concomitant]
  17. HERBAL ONT [Concomitant]
  18. METHADONE HCL [Concomitant]

REACTIONS (37)
  - ACUTE STRESS DISORDER [None]
  - AGGRESSION [None]
  - AGITATION [None]
  - AKATHISIA [None]
  - AMMONIA INCREASED [None]
  - AMNESIA [None]
  - ANXIETY [None]
  - CONFUSIONAL STATE [None]
  - DELIRIUM [None]
  - DIABETES MELLITUS [None]
  - DISTURBANCE IN ATTENTION [None]
  - DRUG WITHDRAWAL SYNDROME [None]
  - DYSARTHRIA [None]
  - HAEMATEMESIS [None]
  - HEADACHE [None]
  - HEPATIC ENCEPHALOPATHY [None]
  - HYPERTENSION [None]
  - HYPERVIGILANCE [None]
  - IMPULSE-CONTROL DISORDER [None]
  - JAUNDICE [None]
  - LEUKAEMOID REACTION [None]
  - LEUKOCYTOSIS [None]
  - LOOSE STOOLS [None]
  - MEDICATION ERROR [None]
  - MEMORY IMPAIRMENT [None]
  - MENTAL STATUS CHANGES [None]
  - METABOLIC DISORDER [None]
  - PAIN IN EXTREMITY [None]
  - POLLAKIURIA [None]
  - PORTAL HYPERTENSIVE GASTROPATHY [None]
  - PSYCHOTIC DISORDER [None]
  - PYREXIA [None]
  - SELF-MEDICATION [None]
  - TREMOR [None]
  - UPPER GASTROINTESTINAL HAEMORRHAGE [None]
  - VARICES OESOPHAGEAL [None]
  - WEIGHT DECREASED [None]
